FAERS Safety Report 14439672 (Version 1)
Quarter: 2018Q1

REPORT INFORMATION
  Report Type: Spontaneous
  Country: US (occurrence: US)
  Receive Date: 20180125
  Receipt Date: 20180125
  Transmission Date: 20180509
  Serious: No
  Sender: FDA-Public Use
  Company Number: US-ASTRAZENECA-2018SE06931

PATIENT
  Sex: Female
  Weight: 66.7 kg

DRUGS (3)
  1. INVOKANA [Concomitant]
     Active Substance: CANAGLIFLOZIN
     Indication: DIABETES MELLITUS
     Route: 065
  2. BYETTA [Suspect]
     Active Substance: EXENATIDE
     Indication: TYPE 2 DIABETES MELLITUS
     Route: 058
  3. BYETTA [Suspect]
     Active Substance: EXENATIDE
     Indication: TYPE 2 DIABETES MELLITUS
     Dosage: ONCE A DAY
     Route: 058

REACTIONS (6)
  - Blood glucose increased [Unknown]
  - Arthritis [Unknown]
  - Intentional product misuse [Unknown]
  - Drug dose omission [Unknown]
  - Osteopenia [Unknown]
  - Pain [Unknown]
